FAERS Safety Report 23281545 (Version 1)
Quarter: 2023Q4

REPORT INFORMATION
  Report Type: Spontaneous
  Country: US (occurrence: US)
  Receive Date: 20231211
  Receipt Date: 20231211
  Transmission Date: 20240110
  Serious: Yes (Death, Congenital Anomaly, Other)
  Sender: FDA-Public Use
  Company Number: US-CIPLA LTD.-2014US00635

PATIENT

DRUGS (5)
  1. ZIDOVUDINE [Suspect]
     Active Substance: ZIDOVUDINE
     Dosage: 600 MG/KG/HR, UNK
     Route: 064
     Dates: start: 20130621, end: 20130624
  2. LAMIVUDINE [Suspect]
     Active Substance: LAMIVUDINE
     Dosage: 300 MG, PER DAY
     Route: 064
     Dates: start: 20130621, end: 20130624
  3. LAMIVUDINE\ZIDOVUDINE [Suspect]
     Active Substance: LAMIVUDINE\ZIDOVUDINE
     Dosage: 900 MG, PER DAY
     Route: 064
     Dates: start: 20130624
  4. COMBIVIR [Suspect]
     Active Substance: LAMIVUDINE\ZIDOVUDINE
     Dosage: UNK
     Route: 064
     Dates: start: 20110810, end: 20130621
  5. LOPINAVIR\RITONAVIR [Suspect]
     Active Substance: LOPINAVIR\RITONAVIR
     Dosage: UNK
     Route: 064
     Dates: start: 20120810

REACTIONS (2)
  - Neural tube defect [Fatal]
  - Arnold-Chiari malformation [Fatal]

NARRATIVE: CASE EVENT DATE: 20120905
